FAERS Safety Report 12896864 (Version 1)
Quarter: 2016Q4

REPORT INFORMATION
  Report Type: Spontaneous
  Country: US (occurrence: US)
  Receive Date: 20161031
  Receipt Date: 20161031
  Transmission Date: 20170207
  Serious: No
  Sender: FDA-Public Use
  Company Number: US-ASTRAZENECA-2016SF12271

PATIENT
  Age: 57 Year
  Sex: Male

DRUGS (2)
  1. KRILL OIL [Interacting]
     Active Substance: DIETARY SUPPLEMENT
     Dosage: UNK
     Route: 048
     Dates: start: 201604, end: 201610
  2. PRILOSEC OTC [Suspect]
     Active Substance: OMEPRAZOLE MAGNESIUM
     Route: 048

REACTIONS (8)
  - Ear pain [Recovered/Resolved]
  - Abdominal pain upper [Recovering/Resolving]
  - Chest pain [Recovering/Resolving]
  - Back pain [Recovered/Resolved]
  - Product use issue [Unknown]
  - Drug interaction [Unknown]
  - Neck pain [Recovered/Resolved]
  - Headache [Recovered/Resolved]

NARRATIVE: CASE EVENT DATE: 201604
